FAERS Safety Report 20362057 (Version 1)
Quarter: 2022Q1

REPORT INFORMATION
  Report Type: Spontaneous
  Country: US (occurrence: US)
  Receive Date: 20220121
  Receipt Date: 20220121
  Transmission Date: 20220423
  Serious: Yes (Hospitalization)
  Sender: FDA-Public Use
  Company Number: US-PFIZER INC-202101597476

PATIENT
  Age: 86 Year
  Sex: Female
  Weight: 58.957 kg

DRUGS (2)
  1. IBRANCE [Suspect]
     Active Substance: PALBOCICLIB
     Indication: Neoplasm malignant
     Dosage: 75 MG
     Dates: start: 202010, end: 20211110
  2. LETROZOLE [Concomitant]
     Active Substance: LETROZOLE
     Dosage: 25 MG
     Dates: start: 202010

REACTIONS (1)
  - Malaise [Not Recovered/Not Resolved]
